FAERS Safety Report 19290287 (Version 1)
Quarter: 2021Q2

REPORT INFORMATION
  Report Type: Report from Study
  Country: None (occurrence: US)
  Receive Date: 20210521
  Receipt Date: 20210521
  Transmission Date: 20210717
  Serious: Yes (Hospitalization)
  Sender: FDA-Public Use
  Company Number: US-ABBVIE-21P-163-3906154-00

PATIENT
  Age: 13 Year
  Sex: Male
  Weight: 27.4 kg

DRUGS (51)
  1. ZOFRAN [Concomitant]
     Active Substance: ONDANSETRON HYDROCHLORIDE
     Indication: NAUSEA
     Route: 048
     Dates: start: 20141125
  2. VALCYTE [Concomitant]
     Active Substance: VALGANCICLOVIR HYDROCHLORIDE
     Indication: HERPES SIMPLEX
  3. VEETID [Concomitant]
     Indication: PNEUMOCYSTIS JIROVECII PNEUMONIA
     Route: 048
     Dates: start: 20190922
  4. INFLAMASE FORTE [Concomitant]
     Active Substance: PREDNISOLONE SODIUM PHOSPHATE
     Indication: EYE PRURITUS
  5. VITAMIN D3 [Concomitant]
     Active Substance: CHOLECALCIFEROL
     Indication: OSTEOPENIA
  6. AZASITE [Concomitant]
     Active Substance: AZITHROMYCIN MONOHYDRATE
     Indication: MEIBOMIAN GLAND DYSFUNCTION
     Dosage: EYE DROPS
     Dates: start: 20201102
  7. MOMETASONE [Concomitant]
     Active Substance: MOMETASONE
     Indication: SKIN MASS
     Route: 061
  8. CORTEF [Concomitant]
     Active Substance: HYDROCORTISONE
     Indication: ADRENAL INSUFFICIENCY
     Dosage: 0.5 TAB (2.5 MG TOTAL), PO, BID WITH LUNCH AND BEDTIME + 1 TABLET (5 MG TOTAL) IN AM
     Route: 048
     Dates: start: 20190910
  9. ZITHROMAX [Concomitant]
     Active Substance: AZITHROMYCIN DIHYDRATE
     Indication: OBLITERATIVE BRONCHIOLITIS
     Dosage: THREE WEEKLY
     Route: 048
     Dates: start: 20190503
  10. ZITHROMAX [Concomitant]
     Active Substance: AZITHROMYCIN DIHYDRATE
     Indication: GRAFT VERSUS HOST DISEASE IN LUNG
  11. FML [Concomitant]
     Active Substance: FLUOROMETHOLONE
     Indication: DRY EYE
     Dosage: EYE DROPS
     Dates: start: 20170210
  12. RESTASIS [Concomitant]
     Active Substance: CYCLOSPORINE
     Indication: DRY EYE
     Dosage: EYE DROPS
     Dates: start: 20170331
  13. SYMBICORT [Concomitant]
     Active Substance: BUDESONIDE\FORMOTEROL FUMARATE DIHYDRATE
     Indication: GRAFT VERSUS HOST DISEASE IN LUNG
     Dosage: STRENGTH: 160?4.5 MCG
     Route: 055
     Dates: start: 20190814
  14. VENTOLIN HFA [Concomitant]
     Active Substance: ALBUTEROL SULFATE
     Indication: GRAFT VERSUS HOST DISEASE IN LUNG
  15. RBC TRANSFUSION [Concomitant]
     Indication: GRAFT VERSUS HOST DISEASE
     Route: 042
     Dates: start: 20210406
  16. IBRUTINIB [Suspect]
     Active Substance: IBRUTINIB
     Indication: CHRONIC GRAFT VERSUS HOST DISEASE
     Route: 048
     Dates: start: 20190426, end: 20210512
  17. SINGULAIR [Concomitant]
     Active Substance: MONTELUKAST SODIUM
     Indication: OBLITERATIVE BRONCHIOLITIS
     Dosage: NIGHTLY
     Route: 048
     Dates: start: 20160216
  18. VALCYTE [Concomitant]
     Active Substance: VALGANCICLOVIR HYDROCHLORIDE
     Indication: CYTOMEGALOVIRUS INFECTION
     Route: 048
     Dates: start: 20190125
  19. WHITE PETROLATUM?MINERAL OIL [Concomitant]
     Indication: DRY EYE
     Dosage: 0.5 INCH, QPM
     Route: 061
     Dates: start: 20200813
  20. IBRUTINIB [Suspect]
     Active Substance: IBRUTINIB
     Indication: OBLITERATIVE BRONCHIOLITIS
     Route: 048
     Dates: start: 20210515
  21. SODIUM CHLORIDE. [Concomitant]
     Active Substance: SODIUM CHLORIDE
     Indication: HYPONATRAEMIA
     Route: 048
     Dates: start: 20150720
  22. VEETID [Concomitant]
     Indication: HYPOSPLENISM
  23. VENTOLIN HFA [Concomitant]
     Active Substance: ALBUTEROL SULFATE
     Indication: OBLITERATIVE BRONCHIOLITIS
     Route: 055
     Dates: start: 20191011
  24. FLORINEF ACETATE [Concomitant]
     Active Substance: FLUDROCORTISONE ACETATE
     Indication: ADRENOLEUKODYSTROPHY
  25. REFRESH PLUS [Concomitant]
     Active Substance: CARBOXYMETHYLCELLULOSE SODIUM
     Indication: CHRONIC GRAFT VERSUS HOST DISEASE IN EYE
     Dosage: EYE DROPS
     Dates: start: 20200813
  26. HEPARIN LOCK FLUSH [Concomitant]
     Active Substance: HEPARIN SODIUM
     Indication: DEVICE RELATED INFECTION
     Route: 042
     Dates: start: 20200923
  27. CORTEF [Concomitant]
     Active Substance: HYDROCORTISONE
     Indication: ADRENOLEUKODYSTROPHY
  28. SOLU?CORTEF [Concomitant]
     Active Substance: HYDROCORTISONE SODIUM SUCCINATE
     Indication: ADRENOLEUKODYSTROPHY
  29. NORVASC [Concomitant]
     Active Substance: AMLODIPINE BESYLATE
     Indication: HYPERTENSION
  30. SYMBICORT [Concomitant]
     Active Substance: BUDESONIDE\FORMOTEROL FUMARATE DIHYDRATE
     Indication: OBLITERATIVE BRONCHIOLITIS
  31. CALTRATE [Concomitant]
     Active Substance: CALCIUM CARBONATE
     Indication: VITAMIN D DEFICIENCY
     Dosage: 600MG?1500MG?800 UNITS
     Route: 048
     Dates: start: 20200723
  32. CALTRATE [Concomitant]
     Active Substance: CALCIUM CARBONATE
     Indication: OSTEOPENIA
  33. CORTEF [Concomitant]
     Active Substance: HYDROCORTISONE
     Indication: ILLNESS
  34. ELIDEL [Concomitant]
     Active Substance: PIMECROLIMUS
     Indication: CHRONIC GRAFT VERSUS HOST DISEASE IN SKIN
     Dosage: 1 APPLICATION
     Route: 061
     Dates: start: 20181019
  35. NORVASC [Concomitant]
     Active Substance: AMLODIPINE BESYLATE
     Indication: DRUG THERAPY
     Dosage: NIGHTLY
     Route: 048
     Dates: start: 20190108
  36. ELOCON [Concomitant]
     Active Substance: MOMETASONE FUROATE
     Indication: SKIN MASS
     Dosage: 1 APPLY
     Route: 061
     Dates: start: 20190910
  37. CORTEF [Concomitant]
     Active Substance: HYDROCORTISONE
     Indication: PYREXIA
  38. SINGULAIR [Concomitant]
     Active Substance: MONTELUKAST SODIUM
     Indication: GRAFT VERSUS HOST DISEASE IN LUNG
  39. FML [Concomitant]
     Active Substance: FLUOROMETHOLONE
     Indication: CHRONIC GRAFT VERSUS HOST DISEASE
  40. SOLU?CORTEF [Concomitant]
     Active Substance: HYDROCORTISONE SODIUM SUCCINATE
     Indication: ADRENAL INSUFFICIENCY
     Route: 030
     Dates: start: 20180828
  41. MEPRON [Concomitant]
     Active Substance: ATOVAQUONE
     Indication: PNEUMOCYSTIS JIROVECII PNEUMONIA
     Route: 048
     Dates: start: 20190103
  42. INFLAMASE FORTE [Concomitant]
     Active Substance: PREDNISOLONE SODIUM PHOSPHATE
     Indication: EYE IRRITATION
     Dosage: EYE DROPS
     Dates: start: 20191115
  43. K?DUR [Concomitant]
     Active Substance: POTASSIUM CHLORIDE
     Indication: HYPOKALAEMIA
     Route: 048
     Dates: start: 20200105
  44. MEGACE [Concomitant]
     Active Substance: MEGESTROL ACETATE
     Indication: WEIGHT DECREASED
     Route: 048
     Dates: start: 20200310
  45. NOXAFIL [Concomitant]
     Active Substance: POSACONAZOLE
     Indication: ANTIFUNGAL PROPHYLAXIS
     Route: 048
     Dates: start: 20201209
  46. RESTASIS [Concomitant]
     Active Substance: CYCLOSPORINE
     Indication: CHRONIC GRAFT VERSUS HOST DISEASE
  47. MULTIVITAMIN [Concomitant]
     Active Substance: VITAMINS
     Indication: HYPOVITAMINOSIS
     Route: 048
     Dates: start: 20170627
  48. ZYRTEC [Concomitant]
     Active Substance: CETIRIZINE HYDROCHLORIDE
     Indication: HYPERSENSITIVITY
     Route: 048
     Dates: start: 20180111
  49. KENALOG [Concomitant]
     Active Substance: TRIAMCINOLONE ACETONIDE
     Indication: CHRONIC GRAFT VERSUS HOST DISEASE IN SKIN
     Dosage: 1 APPLY
     Route: 061
     Dates: start: 20190201
  50. FLORINEF ACETATE [Concomitant]
     Active Substance: FLUDROCORTISONE ACETATE
     Indication: ADRENAL INSUFFICIENCY
     Dosage: QPM
     Route: 048
     Dates: start: 20200214
  51. VITAMIN D3 [Concomitant]
     Active Substance: CHOLECALCIFEROL
     Indication: VITAMIN D DEFICIENCY
     Route: 048
     Dates: start: 20200910

REACTIONS (1)
  - Pharyngitis streptococcal [Recovered/Resolved]

NARRATIVE: CASE EVENT DATE: 20210513
